FAERS Safety Report 5697684-7 (Version None)
Quarter: 2008Q2

REPORT INFORMATION
  Report Type: 
  Country: None (occurrence: None)
  Receive Date: 20080408
  Receipt Date: 20080401
  Transmission Date: 20081010
  Serious: Yes (Hospitalization)
  Sender: FDA-Public Use
  Company Number: A0718673A

PATIENT
  Age: 56 Year
  Sex: Female

DRUGS (2)
  1. LAMICTAL [Suspect]
     Indication: BIPOLAR DISORDER
     Dosage: 200MG PER DAY
     Route: 048
  2. L-THYROXINE [Concomitant]

REACTIONS (22)
  - ABASIA [None]
  - ANXIETY [None]
  - APHASIA [None]
  - ASTHENIA [None]
  - ASTHENOPIA [None]
  - ATAXIA [None]
  - COGNITIVE DISORDER [None]
  - DYSKINESIA [None]
  - DYSSTASIA [None]
  - HEADACHE [None]
  - HYPOTENSION [None]
  - MALAISE [None]
  - MEMORY IMPAIRMENT [None]
  - MOTION SICKNESS [None]
  - MOTOR DYSFUNCTION [None]
  - MYALGIA [None]
  - NAUSEA [None]
  - OVERDOSE [None]
  - PYREXIA [None]
  - RASH [None]
  - VISUAL DISTURBANCE [None]
  - VOMITING [None]
